FAERS Safety Report 7933577-X (Version None)
Quarter: 2011Q4

REPORT INFORMATION
  Report Type: 
  Country: None (occurrence: None)
  Receive Date: 20111122
  Receipt Date: 20111110
  Transmission Date: 20120403
  Serious: Yes (Other)
  Sender: FDA-Public Use
  Company Number: JP-ELI_LILLY_AND_COMPANY-JP201110005931

PATIENT
  Age: 49 Year
  Sex: Female

DRUGS (6)
  1. FOLIC ACID [Concomitant]
  2. CARBOPLATIN [Concomitant]
     Indication: LUNG ADENOCARCINOMA
     Dosage: UNK
  3. TARCEVA [Concomitant]
     Dosage: UNK
     Dates: start: 20110201
  4. VITAMIN B-12 [Concomitant]
  5. ALIMTA [Suspect]
     Indication: LUNG ADENOCARCINOMA
     Dosage: UNK
     Route: 042
  6. BEVACIZUMAB [Concomitant]
     Indication: LUNG ADENOCARCINOMA
     Dosage: UNK

REACTIONS (1)
  - EXTREMITY NECROSIS [None]
